FAERS Safety Report 7968964-7 (Version None)
Quarter: 2011Q4

REPORT INFORMATION
  Report Type: 
  Country: None (occurrence: None)
  Receive Date: 20111209
  Receipt Date: 20111205
  Transmission Date: 20120403
  Serious: Yes (Hospitalization)
  Sender: FDA-Public Use
  Company Number: CA-AMGEN-CANSP2011057216

PATIENT
  Age: 66 Year
  Sex: Female

DRUGS (4)
  1. AMINOPHYLLINE [Concomitant]
     Dosage: UNK
  2. ENBREL [Suspect]
     Indication: RHEUMATOID ARTHRITIS
     Dosage: 50 MG, QWK
     Dates: start: 20090707
  3. ELAVIL [Concomitant]
     Dosage: UNK
  4. PLAQUENIL [Concomitant]
     Dosage: UNK

REACTIONS (2)
  - RHEUMATOID ARTHRITIS [None]
  - GASTRIC BYPASS [None]
